FAERS Safety Report 15095767 (Version 1)
Quarter: 2018Q3

REPORT INFORMATION
  Report Type: Report from Study
  Country: CN (occurrence: CN)
  Receive Date: 20180702
  Receipt Date: 20180702
  Transmission Date: 20181010
  Serious: Yes (Other)
  Sender: FDA-Public Use
  Company Number: CN-ROCHE-2147130

PATIENT

DRUGS (2)
  1. BEVACIZUMAB. [Suspect]
     Active Substance: BEVACIZUMAB
     Indication: COLORECTAL CANCER
     Dosage: 100MG/4ML
     Route: 041
  2. LENALIDOMIDE [Suspect]
     Active Substance: LENALIDOMIDE
     Indication: COLORECTAL CANCER
     Dosage: FORM THE 1ST DATE TO THE 21TH DATE
     Route: 048

REACTIONS (8)
  - Granulocyte count decreased [Unknown]
  - Renal impairment [Unknown]
  - Venous thrombosis [Unknown]
  - Vomiting [Unknown]
  - Nausea [Unknown]
  - Haematuria [Unknown]
  - Haematemesis [Unknown]
  - Blood pressure increased [Unknown]
